FAERS Safety Report 10255152 (Version 1)
Quarter: 2014Q2

REPORT INFORMATION
  Report Type: Report from Study
  Country: FR (occurrence: FR)
  Receive Date: 20140624
  Receipt Date: 20140624
  Transmission Date: 20141212
  Serious: Yes (Hospitalization)
  Sender: FDA-Public Use
  Company Number: FR-TAKEDA-2014JNJ004004

PATIENT
  Sex: 0

DRUGS (2)
  1. VELCADE [Suspect]
     Indication: PLASMA CELL MYELOMA
     Dosage: 1.3 UNK, UNK
     Route: 058
  2. CYCLOPHOSPHAMIDE [Suspect]
     Route: 048

REACTIONS (1)
  - Cryoglobulinaemia [Recovered/Resolved]
